FAERS Safety Report 6847696-2 (Version None)
Quarter: 2010Q3

REPORT INFORMATION
  Report Type: 
  Country: None (occurrence: None)
  Receive Date: 20100716
  Receipt Date: 20100706
  Transmission Date: 20110219
  Serious: Yes (Hospitalization)
  Sender: FDA-Public Use
  Company Number: PHHY2010US44256

PATIENT
  Sex: Male
  Weight: 67 kg

DRUGS (1)
  1. EXJADE [Suspect]
     Indication: MINERAL METABOLISM DISORDER
     Dosage: 1250 MG/ DAILY
     Route: 048

REACTIONS (2)
  - FULL BLOOD COUNT DECREASED [None]
  - TRANSFUSION [None]
